FAERS Safety Report 7557225-6 (Version None)
Quarter: 2011Q2

REPORT INFORMATION
  Report Type: 
  Country: None (occurrence: None)
  Receive Date: 20110620
  Receipt Date: 20110314
  Transmission Date: 20111010
  Serious: Yes (Hospitalization, Other)
  Sender: FDA-Public Use
  Company Number: US-MYLANLABS-2011S1003781

PATIENT
  Age: 62 Year
  Sex: Female
  Weight: 99.79 kg

DRUGS (7)
  1. PERFOROMIST [Suspect]
     Indication: ASTHMA
     Route: 055
     Dates: start: 20100501
  2. ALBUTEROL SULFATE AUTOHALER [Concomitant]
     Dosage: VIA NEBULIZER
  3. XOPENEX [Concomitant]
     Dates: start: 20100101
  4. SPIRIVA [Concomitant]
     Dates: start: 20090101
  5. PREDNISONE [Concomitant]
     Dosage: TAPERING SCHEDULE
     Dates: start: 20090101
  6. SYMBICORT [Concomitant]
     Dates: start: 20100101
  7. THEOPHYLLINE [Concomitant]
     Dates: start: 20090101

REACTIONS (4)
  - URTICARIA [None]
  - LIP SWELLING [None]
  - ASTHMA [None]
  - DYSPNOEA [None]
